FAERS Safety Report 25957750 (Version 3)
Quarter: 2025Q4

REPORT INFORMATION
  Report Type: Report from Study
  Country: US (occurrence: US)
  Receive Date: 20251024
  Receipt Date: 20251210
  Transmission Date: 20260118
  Serious: Yes (Other)
  Sender: ABBVIE
  Company Number: US-ABBVIE-6333242

PATIENT
  Age: 53 Year
  Sex: Female
  Weight: 64 kg

DRUGS (9)
  1. RINVOQ [Suspect]
     Active Substance: UPADACITINIB
     Indication: Colitis ulcerative
     Route: 048
     Dates: start: 202405
  2. RINVOQ [Suspect]
     Active Substance: UPADACITINIB
     Indication: Colitis ulcerative
     Dosage: START DATE: 2024 AT WEEK 9?15 MILLIGRAM
     Route: 048
  3. RINVOQ [Suspect]
     Active Substance: UPADACITINIB
     Indication: Colitis ulcerative
     Dosage: STOP DATE: 2024
     Route: 048
     Dates: start: 202407
  4. Gnc women^s one daily multivitamin 50 plus [Concomitant]
     Indication: Vitamin supplementation
     Route: 048
     Dates: start: 20100801
  5. Vitamin D3 Ol [Concomitant]
     Indication: Vitamin supplementation
     Route: 048
     Dates: start: 20100801
  6. AMLODIPINE [Concomitant]
     Active Substance: AMLODIPINE BESYLATE
     Indication: Hypertension
     Route: 048
     Dates: start: 20100801
  7. VITAMIN C [Concomitant]
     Active Substance: ASCORBIC ACID
     Indication: Vitamin supplementation
     Route: 048
     Dates: start: 20100801
  8. FISH OIL [Concomitant]
     Active Substance: FISH OIL
     Indication: Vitamin supplementation
     Route: 048
     Dates: start: 20100801
  9. HYDROCORTISONE [Concomitant]
     Active Substance: HYDROCORTISONE
     Indication: Eczema

REACTIONS (4)
  - Squamous cell carcinoma [Unknown]
  - Colitis ulcerative [Recovered/Resolved]
  - Flatulence [Recovered/Resolved]
  - Abdominal distension [Recovered/Resolved]

NARRATIVE: CASE EVENT DATE: 20240101
